FAERS Safety Report 7674248-7 (Version None)
Quarter: 2011Q3

REPORT INFORMATION
  Report Type: 
  Country: None (occurrence: None)
  Receive Date: 20110810
  Receipt Date: 20110801
  Transmission Date: 20111222
  Serious: Yes (Other)
  Sender: FDA-Public Use
  Company Number: US-ELI_LILLY_AND_COMPANY-US201002004006

PATIENT
  Sex: Female

DRUGS (14)
  1. ESGIC-PLUS [Concomitant]
     Dosage: UNK, PRN
  2. LUNESTA [Concomitant]
     Dosage: 3 MG, EACH EVENING
  3. XANAX [Concomitant]
     Dosage: 0.5 MG, PRN
  4. PREVACID [Concomitant]
     Dosage: 30 MG, QD
  5. ROZEREM [Concomitant]
     Dosage: 8 MG, EACH EVENING
  6. CELEBREX [Concomitant]
     Dosage: 200 MG, QD
  7. EFFEXOR [Concomitant]
     Dosage: 37.5 MG, EACH MORNING
  8. BONIVA [Concomitant]
     Dosage: 150 MG, WEEKLY (1/W)
  9. ALLEGRA [Concomitant]
     Dosage: 60 MG, BID
  10. MONOPRIL [Concomitant]
     Dosage: 20 MG, EACH MORNING
  11. BYETTA [Suspect]
     Indication: TYPE 2 DIABETES MELLITUS
     Dosage: 5 UG, BID
     Route: 065
     Dates: start: 20070707, end: 20080710
  12. LEVOXYL [Concomitant]
     Dosage: 75 UG, QD
  13. PRAVACHOL [Concomitant]
     Dosage: 40 MG, EACH EVENING
  14. PREMPRO [Concomitant]
     Dosage: 0.625 MG, EACH EVENING

REACTIONS (1)
  - PANCREATITIS [None]
